FAERS Safety Report 4861959-1 (Version None)
Quarter: 2005Q4

REPORT INFORMATION
  Report Type: 
  Country: None (occurrence: None)
  Receive Date: 20051130
  Receipt Date: 20050608
  Transmission Date: 20060501
  Serious: Yes (Other)
  Sender: FDA-Public Use
  Company Number: PHEH2005US06134

PATIENT
  Age: 9 Year
  Sex: Female

DRUGS (2)
  1. LAMISIL [Suspect]
     Indication: TINEA CAPITIS
     Dosage: 125 MG, QD, ORAL
     Route: 048
     Dates: start: 20050510
  2. LOPROX (CICLOPIROX OLAMINE) SHAMPOO [Concomitant]

REACTIONS (3)
  - ALOPECIA [None]
  - RASH [None]
  - SWELLING FACE [None]
